FAERS Safety Report 19156503 (Version 1)
Quarter: 2021Q2

REPORT INFORMATION
  Report Type: Spontaneous
  Country: ES (occurrence: ES)
  Receive Date: 20210420
  Receipt Date: 20210420
  Transmission Date: 20210717
  Serious: Yes (Life-Threatening, Hospitalization, Other)
  Sender: FDA-Public Use
  Company Number: ES-AUROBINDO-AUR-APL-2021-015505

PATIENT
  Age: 17 Year
  Sex: Male
  Weight: 64 kg

DRUGS (1)
  1. FLECAINIDE [Suspect]
     Active Substance: FLECAINIDE
     Indication: VENTRICULAR EXTRASYSTOLES
     Dosage: 200 MILLIGRAM 1 TOTAL
     Route: 048
     Dates: start: 20210221, end: 20210221

REACTIONS (5)
  - Long QT syndrome [Recovered/Resolved]
  - Accidental overdose [Recovered/Resolved]
  - Bundle branch block right [Recovered/Resolved]
  - Ataxia [Recovered/Resolved]
  - Vision blurred [Recovered/Resolved]

NARRATIVE: CASE EVENT DATE: 20210221
